FAERS Safety Report 8492510-5 (Version None)
Quarter: 2012Q3

REPORT INFORMATION
  Report Type: 
  Country: None (occurrence: None)
  Receive Date: 20120706
  Receipt Date: 20120702
  Transmission Date: 20120928
  Serious: Yes (Other)
  Sender: FDA-Public Use
  Company Number: BR-ABBOTT-12P-020-0949783-00

PATIENT
  Age: 15 Year
  Sex: Female

DRUGS (4)
  1. NITRAZEPAM [Concomitant]
     Indication: EPILEPSY
     Dosage: 10 MG DAILY
  2. VALPROATE SODIUM [Suspect]
     Indication: EPILEPSY
     Dosage: 1.5 MG DAILY
  3. LAMOTRIGINE [Suspect]
     Indication: EPILEPSY
     Dosage: 300 MG DAILY
  4. LAMOTRIGINE [Suspect]
     Dosage: 250 MG DAILY

REACTIONS (5)
  - VERTIGO [None]
  - TREMOR [None]
  - NYSTAGMUS [None]
  - ATAXIA [None]
  - TOXICITY TO VARIOUS AGENTS [None]
